FAERS Safety Report 9865049 (Version 3)
Quarter: 2014Q1

REPORT INFORMATION
  Report Type: Spontaneous
  Country: US (occurrence: US)
  Receive Date: 20140203
  Receipt Date: 20140307
  Transmission Date: 20141002
  Serious: No
  Sender: FDA-Public Use
  Company Number: US-AMGEN-USASP2014002029

PATIENT
  Age: 54 Year
  Sex: Female
  Weight: 63.49 kg

DRUGS (2)
  1. ENBREL [Suspect]
     Indication: PSORIASIS
     Dosage: 50 MG, 2 TIMES/WK
     Route: 058
     Dates: start: 20130924, end: 20131024
  2. EFFEXOR [Concomitant]
     Dosage: 375 MG, UNK
     Route: 048

REACTIONS (6)
  - Local swelling [Recovered/Resolved]
  - Pain in extremity [Recovered/Resolved]
  - Gait disturbance [Recovered/Resolved]
  - Skin haemorrhage [Recovered/Resolved]
  - Psoriasis [Recovering/Resolving]
  - Injection site swelling [Unknown]
